FAERS Safety Report 12598738 (Version 2)
Quarter: 2016Q3

REPORT INFORMATION
  Report Type: Spontaneous
  Country: US (occurrence: US)
  Receive Date: 20160727
  Receipt Date: 20160822
  Transmission Date: 20161109
  Serious: No
  Sender: FDA-Public Use
  Company Number: US-G+W LABS-GW2016US000058

PATIENT

DRUGS (2)
  1. KERYDIN [Concomitant]
     Active Substance: TAVABOROLE
  2. CICLOPIROX. [Suspect]
     Active Substance: CICLOPIROX
     Indication: ONYCHOMYCOSIS
     Dosage: UNK, DAILY
     Dates: start: 201604, end: 2016

REACTIONS (2)
  - Application site pain [Unknown]
  - Drug ineffective [Unknown]
